FAERS Safety Report 26112481 (Version 1)
Quarter: 2025Q4

REPORT INFORMATION
  Report Type: Report from Study
  Country: EU (occurrence: EU)
  Receive Date: 20251202
  Receipt Date: 20251202
  Transmission Date: 20260117
  Serious: Yes (Other)
  Sender: ASTELLAS
  Company Number: EU-ASTELLAS-2025-AER-066166

PATIENT
  Age: 84 Year
  Sex: Male

DRUGS (9)
  1. ENFORTUMAB VEDOTIN [Suspect]
     Active Substance: ENFORTUMAB VEDOTIN
     Indication: Transitional cell carcinoma metastatic
     Route: 042
     Dates: start: 20241114, end: 20250912
  2. ALLOPURINOL [Concomitant]
     Active Substance: ALLOPURINOL
     Indication: Product used for unknown indication
     Dosage: HALF PAST TABLET ONCE A DAY
     Route: 065
     Dates: start: 20250114
  3. OLMESARTAN [Concomitant]
     Active Substance: OLMESARTAN
     Indication: Multimorbidity
     Route: 065
     Dates: start: 2010
  4. FLECAINIDE [Concomitant]
     Active Substance: FLECAINIDE
     Indication: Multimorbidity
     Route: 065
     Dates: start: 2019
  5. ESOMEPRAZOLE [Concomitant]
     Active Substance: ESOMEPRAZOLE
     Indication: Prophylaxis
     Route: 065
     Dates: start: 20241029
  6. TORSEMIDE [Concomitant]
     Active Substance: TORSEMIDE
     Indication: Multimorbidity
     Route: 065
     Dates: start: 20250107
  7. MYCOPHENOLIC ACID [Concomitant]
     Active Substance: MYCOPHENOLIC ACID
     Indication: Multimorbidity
     Route: 065
     Dates: start: 20241029
  8. ILOPROST [Concomitant]
     Active Substance: ILOPROST
     Indication: Multimorbidity
     Route: 065
     Dates: start: 20241029
  9. BRIMONIDINE [Concomitant]
     Active Substance: BRIMONIDINE TARTRATE
     Indication: Ocular hypertension
     Route: 065
     Dates: start: 20241029

REACTIONS (2)
  - Neutropenia [Recovered/Resolved]
  - Fatigue [Recovered/Resolved]

NARRATIVE: CASE EVENT DATE: 20250204
